FAERS Safety Report 16502164 (Version 1)
Quarter: 2019Q3

REPORT INFORMATION
  Report Type: Spontaneous
  Country: DE (occurrence: DE)
  Receive Date: 20190701
  Receipt Date: 20190701
  Transmission Date: 20191004
  Serious: Yes (Other)
  Sender: FDA-Public Use
  Company Number: DE-NXDC-GLE-0021-2019

PATIENT
  Age: 74 Year
  Sex: Male

DRUGS (2)
  1. AMPICILLIN [Concomitant]
     Active Substance: AMPICILLIN
     Dosage: HIGH-DOSE AMPICILLIN (15G/D) WAS ADMINISTERED FOR 8 WEEKS
  2. GLIOLAN [Suspect]
     Active Substance: AMINOLEVULINIC ACID HYDROCHLORIDE
     Indication: PHOTODYNAMIC DIAGNOSTIC PROCEDURE
     Dosage: ADMINISTRATION PRIOR TO THE OPERATION

REACTIONS (6)
  - Hemiplegia [Recovered/Resolved]
  - Product use in unapproved indication [Recovered/Resolved]
  - Facial paralysis [Not Recovered/Not Resolved]
  - Epilepsy [Not Recovered/Not Resolved]
  - Disturbance in attention [Recovered/Resolved]
  - Drug effective for unapproved indication [Recovered/Resolved]
